FAERS Safety Report 12550678 (Version 1)
Quarter: 2016Q3

REPORT INFORMATION
  Report Type: Spontaneous
  Country: DE (occurrence: DE)
  Receive Date: 20160712
  Receipt Date: 20160712
  Transmission Date: 20161109
  Serious: Yes (Life-Threatening)
  Sender: FDA-Public Use
  Company Number: DE-TAKEDA-2016MPI005469

PATIENT
  Age: 75 Year
  Sex: Male
  Weight: 76 kg

DRUGS (2)
  1. VELCADE [Suspect]
     Active Substance: BORTEZOMIB
     Indication: PLASMA CELL MYELOMA
     Dosage: 3.575 MG, UNK
     Route: 058
     Dates: start: 20160510
  2. VELCADE [Suspect]
     Active Substance: BORTEZOMIB
     Dosage: UNK
     Route: 058
     Dates: start: 20160629

REACTIONS (5)
  - Overdose [Unknown]
  - Product preparation error [Unknown]
  - Incorrect route of drug administration [Not Recovered/Not Resolved]
  - Drug prescribing error [Unknown]
  - Thrombocytopenia [Recovered/Resolved]

NARRATIVE: CASE EVENT DATE: 20160519
